FAERS Safety Report 7759541-1 (Version None)
Quarter: 2011Q3

REPORT INFORMATION
  Report Type: 
  Country: None (occurrence: None)
  Receive Date: 20110915
  Receipt Date: 20110831
  Transmission Date: 20111222
  Serious: Yes (Other)
  Sender: FDA-Public Use
  Company Number: 1000023696

PATIENT
  Age: 27 Year
  Sex: Female

DRUGS (3)
  1. CITALOPRAM HYDROBROMIDE [Suspect]
     Dosage: 50 MG (50 MG, 1 IN 1 D), 40 MG (40 MG, 1 IN 1 D)
  2. CITALOPRAM HYDROBROMIDE [Suspect]
     Dosage: 40 MG (40 MG, 1 IN 1 D)
  3. CITALOPRAM HYDROBROMIDE [Suspect]
     Dosage: 60 MG (60 MG, 1 IN 1 D)

REACTIONS (3)
  - CONDITION AGGRAVATED [None]
  - DEPRESSION [None]
  - AGITATION [None]
